FAERS Safety Report 6644244-7 (Version None)
Quarter: 2010Q1

REPORT INFORMATION
  Report Type: 
  Country: None (occurrence: None)
  Receive Date: 20100319
  Receipt Date: 20100319
  Transmission Date: 20100710
  Serious: Yes (Hospitalization)
  Sender: FDA-Public Use
  Company Number: None

PATIENT
  Age: 67 Year
  Sex: Male
  Weight: 88 kg

DRUGS (7)
  1. COUMADIN [Suspect]
     Indication: ATRIAL FIBRILLATION
     Dosage: 2.5MG/ 5MG SMTWTHF/ F PO/PO
     Route: 048
  2. ASPIRIN [Suspect]
     Indication: CORONARY ARTERY DISEASE
     Dosage: 81MG DAILY PO
     Route: 048
  3. ALTACE [Concomitant]
  4. PRAVACHOL [Concomitant]
  5. METOPROLOL TARTRATE [Concomitant]
  6. MULTAQ [Concomitant]
  7. CALCIUM [Concomitant]

REACTIONS (3)
  - HAEMATEMESIS [None]
  - OESOPHAGEAL ULCER [None]
  - THROMBOCYTOPENIA [None]
